FAERS Safety Report 22353592 (Version 1)
Quarter: 2023Q2

REPORT INFORMATION
  Report Type: Spontaneous
  Country: CA (occurrence: None)
  Receive Date: 20230523
  Receipt Date: 20230523
  Transmission Date: 20230721
  Serious: Yes (Hospitalization)
  Sender: FDA-Public Use
  Company Number: CA-ROCHE-3353131

PATIENT
  Age: 42 Year
  Sex: Male
  Weight: 108 kg

DRUGS (24)
  1. ACTEMRA [Suspect]
     Active Substance: TOCILIZUMAB
     Indication: Rheumatoid arthritis
     Route: 042
  2. ACTEMRA [Suspect]
     Active Substance: TOCILIZUMAB
     Route: 042
  3. ACTEMRA [Suspect]
     Active Substance: TOCILIZUMAB
     Route: 042
  4. ACTEMRA [Suspect]
     Active Substance: TOCILIZUMAB
     Route: 042
  5. SOLIRIS [Suspect]
     Active Substance: ECULIZUMAB
     Indication: Product used for unknown indication
     Dosage: 10MG/ML
     Route: 042
  6. SOLIRIS [Suspect]
     Active Substance: ECULIZUMAB
     Dosage: 10MG/ML
     Route: 042
  7. ILARIS [Suspect]
     Active Substance: CANAKINUMAB
     Indication: Rheumatoid arthritis
     Route: 058
  8. ILARIS [Suspect]
     Active Substance: CANAKINUMAB
     Indication: Still^s disease
  9. PREDNISONE [Suspect]
     Active Substance: PREDNISONE
     Indication: Product used for unknown indication
     Route: 065
  10. ACETAMINOPHEN [Concomitant]
     Active Substance: ACETAMINOPHEN
  11. ACETAMINOPHEN\CODEINE PHOSPHATE [Concomitant]
     Active Substance: ACETAMINOPHEN\CODEINE PHOSPHATE
  12. ACETAMINOPHEN\OXYCODONE HYDROCHLORIDE [Concomitant]
     Active Substance: ACETAMINOPHEN\OXYCODONE HYDROCHLORIDE
  13. ASPIRIN [Concomitant]
     Active Substance: ASPIRIN
  14. ATORVASTATIN CALCIUM [Concomitant]
     Active Substance: ATORVASTATIN CALCIUM
  15. ERGOCALCIFEROL [Concomitant]
     Active Substance: ERGOCALCIFEROL
  16. EZETIMIBE [Concomitant]
     Active Substance: EZETIMIBE
  17. METHOTREXATE [Concomitant]
     Active Substance: METHOTREXATE
  18. FOLIC ACID [Concomitant]
     Active Substance: FOLIC ACID
  19. PREGABALIN [Concomitant]
     Active Substance: PREGABALIN
  20. RISEDRONATE SODIUM [Concomitant]
     Active Substance: RISEDRONATE SODIUM
  21. RITUXIMAB [Concomitant]
     Active Substance: RITUXIMAB
     Route: 065
  22. CYANOCOBALAMIN [Concomitant]
     Active Substance: CYANOCOBALAMIN
  23. ZOPICLONE [Concomitant]
     Active Substance: ZOPICLONE
  24. TYLENOL [Concomitant]
     Active Substance: ACETAMINOPHEN

REACTIONS (25)
  - Arthritis infective [Recovered/Resolved]
  - Cellulitis [Recovered/Resolved]
  - Fall [Unknown]
  - Fluid retention [Recovered/Resolved]
  - Foot fracture [Recovered/Resolved]
  - Hand fracture [Recovered/Resolved]
  - Heart rate decreased [Recovered/Resolved]
  - Injection site extravasation [Recovered/Resolved]
  - Localised infection [Recovered/Resolved]
  - Mobility decreased [Recovered/Resolved]
  - Neuralgia [Recovered/Resolved]
  - Weight decreased [Recovered/Resolved]
  - Wound infection [Recovered/Resolved]
  - Device dislocation [Unknown]
  - Drug ineffective [Unknown]
  - Wound [Recovered/Resolved]
  - Weight increased [Recovered/Resolved]
  - Infusion related reaction [Recovered/Resolved]
  - Vein disorder [Recovered/Resolved]
  - Anxiety [Unknown]
  - Hyperhidrosis [Recovered/Resolved]
  - Hypertension [Recovered/Resolved]
  - Insomnia [Recovered/Resolved]
  - Influenza [Recovered/Resolved]
  - Headache [Recovered/Resolved]
